FAERS Safety Report 6082495-3 (Version None)
Quarter: 2009Q1

REPORT INFORMATION
  Report Type: 
  Country: None (occurrence: None)
  Receive Date: 20090218
  Receipt Date: 20090217
  Transmission Date: 20090719
  Serious: Yes (Other)
  Sender: FDA-Public Use
  Company Number: CA-BRISTOL-MYERS SQUIBB COMPANY-14508402

PATIENT
  Age: 54 Year
  Sex: Male

DRUGS (3)
  1. CISPLATIN [Suspect]
     Indication: LUNG ADENOCARCINOMA
  2. VINBLASTINE [Suspect]
     Indication: LUNG ADENOCARCINOMA
  3. RADIATION THERAPY [Suspect]
     Indication: LUNG ADENOCARCINOMA
     Dosage: 1 DOSAGE FORM= 7 FRACTIONS

REACTIONS (3)
  - HAEMOPTYSIS [None]
  - MYOCARDIAL INFARCTION [None]
  - SUPERIOR VENA CAVAL OCCLUSION [None]
